FAERS Safety Report 9704008 (Version 1)
Quarter: 2013Q4

REPORT INFORMATION
  Report Type: Spontaneous
  Country: US (occurrence: US)
  Receive Date: 20131122
  Receipt Date: 20131122
  Transmission Date: 20140711
  Serious: Yes (Hospitalization)
  Sender: FDA-Public Use
  Company Number: US-BAYER-2013-141367

PATIENT
  Age: 28 Year
  Sex: Female
  Weight: 97.05 kg

DRUGS (7)
  1. YASMIN [Suspect]
  2. YAZ [Suspect]
  3. CHERATUSSIN [CODEINE,GUAIFENESIN,PSEUDOEPHEDRINE] [Concomitant]
     Dosage: 100 MG/5ML
     Route: 048
  4. KEFLEX [Concomitant]
     Dosage: 500 MG, UNK
     Route: 048
  5. IBUPROFEN [Concomitant]
     Dosage: 600 MG, UNK
     Route: 048
  6. DOXYCYCLINE [Concomitant]
     Dosage: 100 MG, UNK
     Route: 048
  7. NITROFURANTOIN [Concomitant]
     Dosage: 100 MG, UNK
     Route: 048

REACTIONS (2)
  - Deep vein thrombosis [Recovered/Resolved]
  - Pulmonary embolism [Recovering/Resolving]
